FAERS Safety Report 6309196-8 (Version None)
Quarter: 2009Q3

REPORT INFORMATION
  Report Type: 
  Country: None (occurrence: None)
  Receive Date: 20090811
  Receipt Date: 20090730
  Transmission Date: 20100115
  Serious: Yes (Hospitalization, Other)
  Sender: FDA-Public Use
  Company Number: 2009AP003117

PATIENT
  Sex: Female

DRUGS (3)
  1. SERTRALINE HYDROCHLORIDE [Suspect]
     Dosage: 100 MG;QD TRPL
     Route: 064
  2. DIHYDROCODEINE COMPOUND [Concomitant]
  3. PARACETAMOL (PARACETAMOL) [Concomitant]

REACTIONS (4)
  - CRYING [None]
  - DYSKINESIA NEONATAL [None]
  - IRRITABILITY [None]
  - WITHDRAWAL SYNDROME [None]
